FAERS Safety Report 11838698 (Version 3)
Quarter: 2018Q1

REPORT INFORMATION
  Report Type: Spontaneous
  Country: US (occurrence: US)
  Receive Date: 20151215
  Receipt Date: 20180115
  Transmission Date: 20180508
  Serious: Yes (Other)
  Sender: FDA-Public Use
  Company Number: US-SA-2015SA178799

PATIENT
  Age: 71 Year
  Sex: Male
  Weight: 84 kg

DRUGS (21)
  1. LANTUS [Concomitant]
     Active Substance: INSULIN GLARGINE
     Indication: DIABETES MELLITUS
     Dosage: DOSE:25 UNIT(S)
     Route: 065
  2. XARELTO [Concomitant]
     Active Substance: RIVAROXABAN
     Route: 065
  3. ATENOLOL. [Concomitant]
     Active Substance: ATENOLOL
     Indication: BLOOD PRESSURE MEASUREMENT
     Route: 065
  4. VITAMIN D3 [Concomitant]
     Active Substance: CHOLECALCIFEROL
     Dosage: DAILY DOSE 500 UNIT DOSE:500 UNIT(S)
     Route: 065
  5. XGEVA [Concomitant]
     Active Substance: DENOSUMAB
     Route: 065
  6. TAXOTERE [Suspect]
     Active Substance: DOCETAXEL
     Dosage: DOSE:75 MILLIGRAM(S)/MILLILITRE
     Route: 042
     Dates: start: 20140311, end: 20140311
  7. LEUPROLIDE [Concomitant]
     Active Substance: LEUPROLIDE
     Route: 065
  8. PANCREATIN [Concomitant]
     Active Substance: PANCRELIPASE
     Route: 065
  9. COUMADIN [Concomitant]
     Active Substance: WARFARIN SODIUM
     Route: 065
  10. PREDNISONE. [Concomitant]
     Active Substance: PREDNISONE
     Route: 065
  11. AJMALINE [Concomitant]
     Active Substance: AJMALINE
     Route: 065
  12. VITAMIN B12 [Concomitant]
     Active Substance: CYANOCOBALAMIN
     Indication: VITAMIN SUPPLEMENTATION
     Route: 065
  13. HUMALOG [Concomitant]
     Active Substance: INSULIN LISPRO
     Indication: DIABETES MELLITUS
     Dosage: DAILY DOSE: 12-16 UNIT
     Route: 065
  14. AMLODIPINE [Concomitant]
     Active Substance: AMLODIPINE BESYLATE
     Indication: BLOOD PRESSURE MEASUREMENT
     Route: 065
  15. MULTAQ [Concomitant]
     Active Substance: DRONEDARONE
     Indication: HEART RATE
     Route: 065
  16. XTANDI [Suspect]
     Active Substance: ENZALUTAMIDE
     Indication: PROSTATE CANCER
     Dosage: STRENGTH: 40MG
     Route: 048
     Dates: start: 20140228
  17. PRAVASTATIN. [Concomitant]
     Active Substance: PRAVASTATIN
     Route: 065
  18. TAXOTERE [Suspect]
     Active Substance: DOCETAXEL
     Dosage: DOSE:75 MILLIGRAM(S)/MILLILITRE
     Route: 042
     Dates: start: 20140218, end: 20140218
  19. TAXOTERE [Suspect]
     Active Substance: DOCETAXEL
     Dosage: DOSE:75 MILLIGRAM(S)/MILLILITRE
     Route: 042
     Dates: start: 20140513, end: 20140513
  20. MULTAQ [Concomitant]
     Active Substance: DRONEDARONE
     Indication: BLOOD PRESSURE MEASUREMENT
     Route: 065
  21. CULTURELLE [Concomitant]
     Active Substance: LACTOBACILLUS RHAMNOSUS
     Route: 065

REACTIONS (10)
  - Nail bed bleeding [Unknown]
  - Alopecia [Unknown]
  - Myalgia [Recovering/Resolving]
  - Fatigue [Recovering/Resolving]
  - Hypertension [Unknown]
  - Stomatitis [Recovering/Resolving]
  - Dyspnoea [Unknown]
  - Fatigue [Not Recovered/Not Resolved]
  - Onychomadesis [Unknown]
  - Fatigue [Unknown]

NARRATIVE: CASE EVENT DATE: 20140311
